FAERS Safety Report 8974156 (Version 1)
Quarter: 2012Q4

REPORT INFORMATION
  Report Type: Spontaneous
  Country: GB (occurrence: None)
  Receive Date: 20121213
  Receipt Date: 20121213
  Transmission Date: 20130627
  Serious: Yes (Hospitalization)
  Sender: FDA-Public Use
  Company Number: AUR-APL-2012-05193

PATIENT
  Age: 84 Year

DRUGS (8)
  1. NAPROXEN (NAPROXEN) [Suspect]
     Indication: OSTEOARTHRITIS
     Dosage: (500 mg)
     Route: 048
  2. AMLODIPINE (AMLODIPINE) [Concomitant]
  3. CO-DYDRAMOL (PARAMOL-118) [Concomitant]
  4. METOCLOPRAMIDE (METOCLOPRAMIDE) [Concomitant]
  5. QUININE (QUININE) [Concomitant]
  6. RABEPRAZOLE (RABEPRAZOLE) [Concomitant]
  7. SIMVASTATIN(SIMVASTATIN) [Concomitant]
  8. SODIUM PICOSULFATE (SODIUM PICOSULFATE) [Concomitant]

REACTIONS (2)
  - Haemoglobin decreased [None]
  - Duodenal ulcer haemorrhage [None]
